FAERS Safety Report 8280402-6 (Version None)
Quarter: 2012Q2

REPORT INFORMATION
  Report Type: 
  Country: None (occurrence: None)
  Receive Date: 20120412
  Receipt Date: 20111205
  Transmission Date: 20120825
  Serious: No
  Sender: FDA-Public Use
  Company Number: US-ASTRAZENECA-2010SE43659

PATIENT
  Age: 60 Year
  Sex: Male

DRUGS (7)
  1. ZANTAC [Concomitant]
  2. UNSPECIFIED [Suspect]
     Route: 065
  3. LISINOPRIL AND HYDROCHLOROTHIAZIDE [Concomitant]
  4. RANITIDINE HCL [Suspect]
     Dosage: 2 CAPSULES DAILY
     Route: 065
  5. NEXIUM [Suspect]
     Route: 048
  6. PANTOPRAZOLE [Suspect]
     Route: 065
  7. PRAVASTATIN [Concomitant]

REACTIONS (5)
  - GASTROOESOPHAGEAL REFLUX DISEASE [None]
  - DRUG DOSE OMISSION [None]
  - BURNING SENSATION [None]
  - DRUG NAME CONFUSION [None]
  - RASH [None]
